FAERS Safety Report 18908909 (Version 2)
Quarter: 2021Q1

REPORT INFORMATION
  Report Type: Spontaneous
  Country: AE (occurrence: AE)
  Receive Date: 20210218
  Receipt Date: 20210219
  Transmission Date: 20210420
  Serious: Yes (Other)
  Sender: FDA-Public Use
  Company Number: AE-BAUSCH-BL-2021-005054

PATIENT
  Age: 41 Year
  Sex: Female

DRUGS (2)
  1. LOTEMAX [Suspect]
     Active Substance: LOTEPREDNOL ETABONATE
     Indication: OFF LABEL USE
  2. LOTEMAX [Suspect]
     Active Substance: LOTEPREDNOL ETABONATE
     Indication: BLEPHARITIS
     Dosage: FOR 3 WEEKS
     Route: 047

REACTIONS (2)
  - Ocular hypertension [Recovered/Resolved]
  - Off label use [Unknown]
